FAERS Safety Report 7268310-0 (Version None)
Quarter: 2011Q1

REPORT INFORMATION
  Report Type: 
  Country: None (occurrence: None)
  Receive Date: 20110201
  Receipt Date: 20110121
  Transmission Date: 20110831
  Serious: Yes (Hospitalization, Disabling, Other)
  Sender: FDA-Public Use
  Company Number: US-MERCK-1007USA02905

PATIENT
  Age: 47 Year
  Sex: Female
  Weight: 62 kg

DRUGS (12)
  1. BUTALBITAL [Concomitant]
     Route: 065
  2. PROPOXYPHENE [Concomitant]
     Route: 065
  3. AMIDRINE [Concomitant]
     Route: 065
  4. FOSAMAX [Suspect]
     Indication: OSTEOPOROSIS
     Route: 048
     Dates: start: 19990924, end: 20070105
  5. OXYCODONE HCL AND ACETAMINOPHEN [Concomitant]
     Route: 065
  6. DICYCLOMINE HYDROCHLORIDE [Concomitant]
     Route: 065
  7. CLONAZEPAM [Concomitant]
     Route: 065
  8. FOSAMAX [Suspect]
     Indication: OSTEOPENIA
     Route: 048
     Dates: start: 19990924, end: 20070105
  9. FOSAMAX PLUS D [Suspect]
     Indication: OSTEOPENIA
     Route: 048
     Dates: start: 20070106, end: 20080812
  10. FOSAMAX PLUS D [Suspect]
     Indication: OSTEOPOROSIS
     Route: 048
     Dates: start: 20070106, end: 20080812
  11. TETRACYCLINE [Concomitant]
     Route: 065
     Dates: end: 20101101
  12. CITALOPRAM [Concomitant]
     Route: 065

REACTIONS (78)
  - LICHEN SCLEROSUS [None]
  - MALNUTRITION [None]
  - DRUG INTOLERANCE [None]
  - WEIGHT DECREASED [None]
  - FEMUR FRACTURE [None]
  - BLOOD ALBUMIN DECREASED [None]
  - ANAEMIA POSTOPERATIVE [None]
  - NECK PAIN [None]
  - ABDOMINAL PAIN [None]
  - MUSCULOSKELETAL PAIN [None]
  - PARAESTHESIA [None]
  - UPPER RESPIRATORY TRACT INFECTION [None]
  - LIMB INJURY [None]
  - BALANCE DISORDER [None]
  - DEPRESSION [None]
  - COUGH [None]
  - ASTIGMATISM [None]
  - WHITE BLOOD CELL DISORDER [None]
  - OSTEONECROSIS [None]
  - HYPOCALCAEMIA [None]
  - OSTEOARTHRITIS [None]
  - SKIN DISORDER [None]
  - SENSORY DISTURBANCE [None]
  - OEDEMA PERIPHERAL [None]
  - VERTIGO [None]
  - TOOTH FRACTURE [None]
  - LOSS OF CONSCIOUSNESS [None]
  - FALL [None]
  - AORTIC VALVE CALCIFICATION [None]
  - FLUID RETENTION [None]
  - JOINT SPRAIN [None]
  - SOMNAMBULISM [None]
  - WHIPLASH INJURY [None]
  - BRUXISM [None]
  - FOOT DEFORMITY [None]
  - DIABETES MELLITUS [None]
  - OSTEOPOROSIS [None]
  - BACK PAIN [None]
  - MUSCLE STRAIN [None]
  - SINUS DISORDER [None]
  - VISION BLURRED [None]
  - VAGINAL INFECTION [None]
  - TRANSIENT ISCHAEMIC ATTACK [None]
  - OROPHARYNGEAL PAIN [None]
  - CONTUSION [None]
  - ARTHRALGIA [None]
  - ACUTE SINUSITIS [None]
  - BREAKTHROUGH PAIN [None]
  - FRACTURE DELAYED UNION [None]
  - CONSTIPATION [None]
  - NEUTROPHILIA [None]
  - BLOOD MAGNESIUM DECREASED [None]
  - LOW TURNOVER OSTEOPATHY [None]
  - HYPERKERATOSIS [None]
  - TENDONITIS [None]
  - ROAD TRAFFIC ACCIDENT [None]
  - JOINT INJURY [None]
  - BLOOD ALKALINE PHOSPHATASE INCREASED [None]
  - ANXIETY [None]
  - CALCIUM DEFICIENCY [None]
  - CONCUSSION [None]
  - TRAUMATIC BRAIN INJURY [None]
  - PAIN IN EXTREMITY [None]
  - HYPERLIPIDAEMIA [None]
  - HYPOTENSION [None]
  - STRESS FRACTURE [None]
  - LEUKOCYTOSIS [None]
  - ALCOHOLISM [None]
  - CORNEAL ABRASION [None]
  - CONFUSIONAL STATE [None]
  - BLOOD CHOLESTEROL INCREASED [None]
  - CEREBELLAR ATAXIA [None]
  - MUSCULOSKELETAL CHEST PAIN [None]
  - VITAMIN D DEFICIENCY [None]
  - HAND FRACTURE [None]
  - FOOT FRACTURE [None]
  - DENTAL CARIES [None]
  - DRUG HYPERSENSITIVITY [None]
